FAERS Safety Report 8111953-2 (Version None)
Quarter: 2012Q1

REPORT INFORMATION
  Report Type: 
  Country: None (occurrence: None)
  Receive Date: 20120203
  Receipt Date: 20110816
  Transmission Date: 20120608
  Serious: No
  Sender: FDA-Public Use
  Company Number: US-GLAXOSMITHKLINE-A0941233A

PATIENT
  Age: 52 Year
  Sex: Female

DRUGS (20)
  1. LEVOTHYROXINE SODIUM [Concomitant]
  2. VITAMIN D [Concomitant]
  3. KLONOPIN [Concomitant]
  4. SPIRIVA [Concomitant]
  5. IRON TABLETS [Concomitant]
  6. CYMBALTA [Concomitant]
  7. DEXLANSOPRAZOLE [Concomitant]
  8. LAMOTRIGINE [Concomitant]
  9. FOLIC ACID [Concomitant]
  10. PHENERGAN [Concomitant]
  11. ARIXTRA [Suspect]
     Indication: PULMONARY THROMBOSIS
     Dosage: 5MG PER DAY
     Route: 058
     Dates: start: 20100201
  12. DOPAMINE HCL [Concomitant]
  13. ALBUTEROL [Concomitant]
  14. ALPRAZOLAM [Concomitant]
  15. FUROSEMIDE [Concomitant]
  16. HYDROCODONE BITARTRATE [Concomitant]
  17. VERAMYST [Concomitant]
  18. OXYBUTYNIN [Concomitant]
  19. PRAMIPEXOLE DIHYCHLLORIDE [Concomitant]
  20. CARVEDILOL [Concomitant]

REACTIONS (2)
  - BLOOD TEST [None]
  - INJECTION SITE HAEMATOMA [None]
